FAERS Safety Report 7972714-8 (Version None)
Quarter: 2011Q4

REPORT INFORMATION
  Report Type: 
  Country: None (occurrence: None)
  Receive Date: 20111213
  Receipt Date: 20111207
  Transmission Date: 20120403
  Serious: Yes (Other)
  Sender: FDA-Public Use
  Company Number: LU-ROCHE-1020205

PATIENT
  Sex: Female

DRUGS (2)
  1. CORTICOTHERAPY [Concomitant]
     Indication: RHEUMATOID ARTHRITIS
  2. ACTEMRA [Suspect]
     Indication: RHEUMATOID ARTHRITIS
     Route: 042
     Dates: start: 20090420, end: 20091111

REACTIONS (1)
  - TENDON RUPTURE [None]
